FAERS Safety Report 7747679-4 (Version None)
Quarter: 2011Q3

REPORT INFORMATION
  Report Type: 
  Country: None (occurrence: None)
  Receive Date: 20110913
  Receipt Date: 20110909
  Transmission Date: 20111222
  Serious: Yes (Death, Other)
  Sender: FDA-Public Use
  Company Number: DE-ROXANE LABORATORIES, INC.-2011-RO-01229RO

PATIENT
  Age: 7 Month
  Sex: Male

DRUGS (6)
  1. PROPRANOLOL [Suspect]
     Indication: CARDIAC FAILURE
  2. FUROSEMIDE [Suspect]
     Indication: CARDIAC FAILURE
  3. CAPTOPRIL [Suspect]
     Indication: CARDIAC FAILURE
  4. SPIRONOLACTONE [Suspect]
     Indication: CARDIAC FAILURE
  5. DIGOXIN [Suspect]
     Indication: CARDIAC FAILURE
  6. METOPROLOL SUCCINATE [Suspect]
     Indication: CARDIAC FAILURE

REACTIONS (2)
  - ESCHERICHIA INFECTION [None]
  - HISTIOCYTOSIS HAEMATOPHAGIC [None]
